FAERS Safety Report 20551633 (Version 2)
Quarter: 2022Q4

REPORT INFORMATION
  Report Type: Spontaneous
  Country: US (occurrence: US)
  Receive Date: 20220304
  Receipt Date: 20221021
  Transmission Date: 20230113
  Serious: Yes (Other)
  Sender: FDA-Public Use
  Company Number: US-JNJFOC-20220301393

PATIENT
  Age: 58 Year
  Sex: Male

DRUGS (4)
  1. RISPERDAL [Interacting]
     Active Substance: RISPERIDONE
     Indication: Product used for unknown indication
     Route: 065
  2. ENZALUTAMIDE [Interacting]
     Active Substance: ENZALUTAMIDE
     Indication: Prostate cancer
     Route: 048
     Dates: start: 20210917
  3. ENZALUTAMIDE [Interacting]
     Active Substance: ENZALUTAMIDE
     Route: 048
  4. PREDNISONE [Interacting]
     Active Substance: PREDNISONE
     Indication: Wheezing
     Route: 065

REACTIONS (7)
  - Schizophrenia [Unknown]
  - Haemorrhage urinary tract [Unknown]
  - Urinary tract infection [Unknown]
  - Drug interaction [Unknown]
  - Product distribution issue [Unknown]
  - Nocturia [Unknown]
  - Urine odour abnormal [Unknown]
